FAERS Safety Report 4631574-3 (Version None)
Quarter: 2005Q2

REPORT INFORMATION
  Report Type: 
  Country: None (occurrence: None)
  Receive Date: 20050407
  Receipt Date: 20050323
  Transmission Date: 20051028
  Serious: Yes (Hospitalization, Other)
  Sender: FDA-Public Use
  Company Number: A-US2004-08467

PATIENT
  Age: 50 Year
  Sex: Female
  Weight: 64.4 kg

DRUGS (13)
  1. TRACLEER [Suspect]
     Indication: PULMONARY HYPERTENSION
     Dosage: 62.5 MG, BID, ORAL
     Route: 048
     Dates: start: 20040801, end: 20041215
  2. ALDACTONE [Concomitant]
  3. ALLEGRA [Concomitant]
  4. AVAPRO [Concomitant]
  5. AMBIEN [Concomitant]
  6. COUMADIN [Concomitant]
  7. FERROUS SULFATE (CYCLOBENZAPRINE HYDROCHLORIDE) [Concomitant]
  8. FLOLAN [Concomitant]
  9. LANTUS [Concomitant]
  10. LASIX [Concomitant]
  11. PREMARIN [Concomitant]
  12. PRILOSEC [Concomitant]
  13. VITAMINS NOS (VITAMINS NOS) [Concomitant]

REACTIONS (7)
  - ALANINE AMINOTRANSFERASE INCREASED [None]
  - ASPARTATE AMINOTRANSFERASE INCREASED [None]
  - BLOOD ALKALINE PHOSPHATASE INCREASED [None]
  - CHEST DISCOMFORT [None]
  - COUGH [None]
  - DYSPNOEA EXACERBATED [None]
  - PYREXIA [None]
